FAERS Safety Report 17193409 (Version 1)
Quarter: 2019Q4

REPORT INFORMATION
  Report Type: Spontaneous
  Country: US (occurrence: US)
  Receive Date: 20191223
  Receipt Date: 20191223
  Transmission Date: 20200122
  Serious: No
  Sender: FDA-Public Use
  Company Number: US-BAUSCH-BL-2019-062520

PATIENT
  Age: 72 Year
  Sex: Female

DRUGS (1)
  1. LUMIFY [Suspect]
     Active Substance: BRIMONIDINE TARTRATE
     Indication: OCULAR HYPERAEMIA
     Dosage: 1 DROP IN BOTH EYES AS NEEDED 2 TO 3 TIMES DAILY
     Route: 047
     Dates: start: 201910, end: 20191118

REACTIONS (3)
  - Physical product label issue [Unknown]
  - Vision blurred [Recovering/Resolving]
  - Night blindness [Recovered/Resolved]

NARRATIVE: CASE EVENT DATE: 2019
